FAERS Safety Report 10629017 (Version 1)
Quarter: 2014Q4

REPORT INFORMATION
  Report Type: Spontaneous
  Country: US (occurrence: US)
  Receive Date: 20141205
  Receipt Date: 20141205
  Transmission Date: 20150529
  Serious: Yes (Other)
  Sender: FDA-Public Use
  Company Number: US-BRISTOL-MYERS SQUIBB COMPANY-21416904

PATIENT
  Age: 47 Year
  Sex: Female

DRUGS (1)
  1. KENALOG [Suspect]
     Active Substance: TRIAMCINOLONE ACETONIDE
     Indication: NERVE COMPRESSION
     Dosage: 1DF-80 MG,30 MG?INJ?3 SHOTS, LAST DOSE ON MAY-2014
     Dates: start: 201403

REACTIONS (6)
  - Swelling face [Unknown]
  - Paraesthesia [Unknown]
  - Rash [Unknown]
  - Secondary adrenocortical insufficiency [Unknown]
  - Muscular weakness [Unknown]
  - Local swelling [Unknown]

NARRATIVE: CASE EVENT DATE: 2014
